FAERS Safety Report 8695947 (Version 3)
Quarter: 2012Q4

REPORT INFORMATION
  Report Type: 
  Country: US (occurrence: US)
  Receive Date: 20120801
  Receipt Date: 20121105
  Transmission Date: 20130627
  Serious: Yes (Hospitalization)
  Sender: FDA-Public Use
  Company Number: US-BIOGENIDEC-2012BI027569

PATIENT
  Age: 41 Year
  Sex: Male

DRUGS (17)
  1. TYSABRI [Suspect]
     Indication: MULTIPLE SCLEROSIS
     Route: 042
     Dates: start: 20110825
  2. BACLOFEN [Concomitant]
     Route: 048
  3. BRIMONIDINE TARTRATE [Concomitant]
     Route: 047
  4. CLONAZEPAM [Concomitant]
  5. FLUNISOLIDE [Concomitant]
  6. GABAPENTIN [Concomitant]
     Route: 048
  7. IBUPROFEN [Concomitant]
     Indication: PAIN
  8. LEVETIRACETAM [Concomitant]
  9. LIDOCAINE [Concomitant]
  10. LORATADINE [Concomitant]
     Indication: MULTIPLE ALLERGIES
     Route: 048
  11. MENTROL SALICYLATE [Concomitant]
  12. MODAFINIL [Concomitant]
     Route: 048
  13. MULTIVITAMINS [Concomitant]
     Route: 048
  14. OMEPRAZOLE [Concomitant]
     Indication: PROPHYLAXIS
     Route: 048
  15. TERAZOSIN HCL [Concomitant]
     Route: 048
  16. VENLAFAXINE HCL 150 MG QD [Concomitant]
     Route: 048
  17. DIAZEPAM [Concomitant]
     Route: 048
     Dates: end: 20120701

REACTIONS (1)
  - Nephrolithiasis [Recovered/Resolved]
